FAERS Safety Report 21822336 (Version 1)
Quarter: 2023Q1

REPORT INFORMATION
  Report Type: Spontaneous
  Country: GB (occurrence: GB)
  Receive Date: 20230105
  Receipt Date: 20230105
  Transmission Date: 20230417
  Serious: Yes (Other)
  Sender: FDA-Public Use
  Company Number: None

PATIENT
  Age: 36 Year
  Sex: Male

DRUGS (10)
  1. FLUOXETINE [Suspect]
     Active Substance: FLUOXETINE HYDROCHLORIDE
     Indication: Depression
     Dosage: 60MG ONCE DAILY AT NIGHT, NOW BACK TO 40MG
     Dates: start: 20221107
  2. AMLODIPINE [Concomitant]
     Active Substance: AMLODIPINE BESYLATE
  3. ATORVASTATIN [Concomitant]
     Active Substance: ATORVASTATIN
  4. INSULIN ASPART [Concomitant]
     Active Substance: INSULIN ASPART
     Indication: Diabetes mellitus
  5. FOLIC ACID [Concomitant]
     Active Substance: FOLIC ACID
  6. GABAPENTIN [Concomitant]
     Active Substance: GABAPENTIN
  7. MOXONIDINE [Concomitant]
     Active Substance: MOXONIDINE
  8. ACETAMINOPHEN [Concomitant]
     Active Substance: ACETAMINOPHEN
  9. RAMIPRIL [Concomitant]
     Active Substance: RAMIPRIL
  10. INSULIN GLARGINE [Concomitant]
     Active Substance: INSULIN GLARGINE
     Indication: Diabetes mellitus

REACTIONS (1)
  - Tinnitus [Recovering/Resolving]

NARRATIVE: CASE EVENT DATE: 20221107
